FAERS Safety Report 18466504 (Version 1)
Quarter: 2020Q4

REPORT INFORMATION
  Report Type: Report from Study
  Country: US (occurrence: US)
  Receive Date: 20201105
  Receipt Date: 20201105
  Transmission Date: 20210114
  Serious: Yes (Other)
  Sender: FDA-Public Use
  Company Number: US-ROCHE-2705455

PATIENT
  Age: 58 Year
  Sex: Male
  Weight: 97.2 kg

DRUGS (1)
  1. ATEZOLIZUMAB. [Suspect]
     Active Substance: ATEZOLIZUMAB
     Indication: SMALL CELL LUNG CANCER
     Dosage: DATE OF LAST DOSE ATEZOLIZUMAB ADMINSTERED: 01/SEP/2020
     Route: 042
     Dates: start: 20200721

REACTIONS (1)
  - Lymphocyte count decreased [Recovered/Resolved with Sequelae]

NARRATIVE: CASE EVENT DATE: 20200915
